FAERS Safety Report 5724371-9 (Version None)
Quarter: 2008Q2

REPORT INFORMATION
  Report Type: 
  Country: None (occurrence: None)
  Receive Date: 20080430
  Receipt Date: 20080421
  Transmission Date: 20081010
  Serious: Yes (Hospitalization)
  Sender: FDA-Public Use
  Company Number: IT-PFIZER INC-2008035115

PATIENT
  Sex: Male

DRUGS (8)
  1. DOXORUBICIN HCL [Suspect]
     Indication: HODGKIN'S DISEASE
     Route: 042
     Dates: start: 20080404, end: 20080404
  2. ACYCLOVIR [Concomitant]
     Route: 048
  3. BLEOMYCIN SULFATE [Concomitant]
     Dosage: DAILY DOSE:12MG
     Route: 042
  4. VINBLASTINE SULFATE [Concomitant]
     Dosage: DAILY DOSE:7.3MG
     Route: 042
  5. DACARBAZINE [Concomitant]
     Dosage: DAILY DOSE:460MG
     Route: 042
  6. ONDANSETRON HCL [Concomitant]
     Dosage: DAILY DOSE:24MG
     Route: 042
  7. BACTRIM [Concomitant]
     Dosage: DAILY DOSE:1920MG
     Route: 048
  8. MYCOSTATIN [Concomitant]

REACTIONS (3)
  - HEADACHE [None]
  - PYREXIA [None]
  - VOMITING [None]
